FAERS Safety Report 5732940-5 (Version None)
Quarter: 2008Q2

REPORT INFORMATION
  Report Type: 
  Country: None (occurrence: None)
  Receive Date: 20080509
  Receipt Date: 20080501
  Transmission Date: 20081010
  Serious: Yes (Other)
  Sender: FDA-Public Use
  Company Number: US-JNJFOC-20080500218

PATIENT
  Sex: Female
  Weight: 99.34 kg

DRUGS (5)
  1. REMICADE [Suspect]
     Indication: PSORIATIC ARTHROPATHY
     Route: 042
  2. HUMALOG [Concomitant]
  3. BENICAR [Concomitant]
  4. AMLODIPINE [Concomitant]
  5. ZANTAC [Concomitant]

REACTIONS (1)
  - BLOOD GLUCOSE INCREASED [None]
